FAERS Safety Report 23566748 (Version 1)
Quarter: 2024Q1

REPORT INFORMATION
  Report Type: Spontaneous
  Country: US (occurrence: US)
  Receive Date: 20240226
  Receipt Date: 20240226
  Transmission Date: 20240410
  Serious: No
  Sender: FDA-Public Use
  Company Number: US-AMNEAL PHARMACEUTICALS-2023-AMRX-01494

PATIENT
  Age: 65 Year
  Sex: Female

DRUGS (4)
  1. RYTARY [Suspect]
     Active Substance: CARBIDOPA\LEVODOPA
     Indication: Product used for unknown indication
     Dosage: 3 CAPSULES AT 6 AM, 2 CAP AT 8:30 AM, 11 AM AND 2 PM
     Route: 048
     Dates: start: 20220920
  2. RYTARY [Suspect]
     Active Substance: CARBIDOPA\LEVODOPA
     Dosage: 23.75-95 MG, 3 CAPSULES, 5 /DAY
     Route: 048
  3. RYTARY [Suspect]
     Active Substance: CARBIDOPA\LEVODOPA
     Dosage: 23.75/95MG, TAKE 2 CAPSULS BY MOUTH 4 TIMES A DAY (AT 5:30AM, 11:30AM,3:30 PM AND 7:30PM)
     Route: 048
     Dates: start: 20231011
  4. RYTARY [Suspect]
     Active Substance: CARBIDOPA\LEVODOPA
     Dosage: 23.75/95MG, 2 CAPS PO QID, TTAKE 2 TABLETS AT 5:30 AM, 3:30 PM, 7:30 PM
     Route: 048

REACTIONS (5)
  - Gait inability [Unknown]
  - Movement disorder [Unknown]
  - Pain in extremity [Unknown]
  - Foot deformity [Unknown]
  - Drug ineffective [Unknown]

NARRATIVE: CASE EVENT DATE: 20230525
